FAERS Safety Report 16284350 (Version 2)
Quarter: 2019Q3

REPORT INFORMATION
  Report Type: Spontaneous
  Country: US (occurrence: US)
  Receive Date: 20190508
  Receipt Date: 20190828
  Transmission Date: 20191004
  Serious: No
  Sender: FDA-Public Use
  Company Number: US-TEVA-2019-US-1045714

PATIENT
  Age: 29 Year
  Sex: Female
  Weight: 98 kg

DRUGS (2)
  1. CLOZAPINE TEVA [Suspect]
     Active Substance: CLOZAPINE
     Indication: PSYCHOTIC DISORDER
     Dates: start: 20190425, end: 20190426
  2. LEVOTHYROXINE. [Concomitant]
     Active Substance: LEVOTHYROXINE
     Indication: HYPOTHYROIDISM

REACTIONS (6)
  - Pruritus generalised [Recovered/Resolved]
  - Peripheral swelling [Recovered/Resolved]
  - Purpura [Recovered/Resolved]
  - Swelling face [Recovered/Resolved]
  - Rash [Not Recovered/Not Resolved]
  - Product prescribing error [Unknown]

NARRATIVE: CASE EVENT DATE: 20190425
